FAERS Safety Report 5812288-0 (Version None)
Quarter: 2008Q3

REPORT INFORMATION
  Report Type: 
  Country: None (occurrence: None)
  Receive Date: 20080716
  Receipt Date: 20080710
  Transmission Date: 20090109
  Serious: Yes (Other)
  Sender: FDA-Public Use
  Company Number: FR-PFIZER INC-2008057593

PATIENT
  Sex: Female

DRUGS (1)
  1. AMLOR [Suspect]

REACTIONS (3)
  - ARTHRALGIA [None]
  - PAIN IN JAW [None]
  - TOOTH LOSS [None]
